FAERS Safety Report 9788901 (Version 2)
Quarter: 2014Q1

REPORT INFORMATION
  Report Type: Spontaneous
  Country: JP (occurrence: JP)
  Receive Date: 20131230
  Receipt Date: 20140107
  Transmission Date: 20141002
  Serious: Yes (Death)
  Sender: FDA-Public Use
  Company Number: JP-GLAXOSMITHKLINE-B0955568A

PATIENT
  Age: 82 Year
  Sex: Female

DRUGS (7)
  1. OMEGA-3-ACID ETHYL ESTERS [Suspect]
     Indication: PRODUCT USED FOR UNKNOWN INDICATION
     Route: 048
  2. PRAVASTATIN SODIUM [Concomitant]
  3. NIFEDIPINE [Concomitant]
  4. GLIMEPIRIDE [Concomitant]
  5. FUROSEMIDE [Concomitant]
  6. TORASEMIDE [Concomitant]
  7. BENET [Concomitant]

REACTIONS (1)
  - Death [Fatal]
